FAERS Safety Report 16919360 (Version 1)
Quarter: 2019Q4

REPORT INFORMATION
  Report Type: Spontaneous
  Country: US (occurrence: US)
  Receive Date: 20190822
  Receipt Date: 20190822
  Transmission Date: 20200122
  Serious: No
  Sender: FDA-Public Use
  Company Number: None

PATIENT
  Age: 65 Year
  Sex: Female

DRUGS (1)
  1. COSENTYX [Suspect]
     Active Substance: SECUKINUMAB
     Indication: PSORIASIS
     Dosage: ?          OTHER DOSE:150MG/ML;?
     Route: 058
     Dates: start: 20180514

REACTIONS (3)
  - Chest discomfort [None]
  - Dyspnoea [None]
  - Dysphonia [None]

NARRATIVE: CASE EVENT DATE: 20181218
